FAERS Safety Report 4847540-9 (Version None)
Quarter: 2005Q4

REPORT INFORMATION
  Report Type: 
  Country: None (occurrence: None)
  Receive Date: 20051207
  Receipt Date: 20041209
  Transmission Date: 20060501
  Serious: Yes (Life-Threatening)
  Sender: FDA-Public Use
  Company Number: US-2004-DE-06154GD

PATIENT
  Age: 19 Year
  Sex: Female

DRUGS (3)
  1. ORCIPRENALINE [Suspect]
     Indication: DYSPNOEA
  2. MARCAINE [Suspect]
     Dosage: 0.25% INJECTION
     Route: 019
  3. VASOPRESSIN [Suspect]
     Route: 019

REACTIONS (5)
  - ANAPHYLACTIC REACTION [None]
  - CARDIAC ARREST [None]
  - DRUG INEFFECTIVE [None]
  - RESPIRATORY ARREST [None]
  - RESPIRATORY DISTRESS [None]
